FAERS Safety Report 5012325-X (Version None)
Quarter: 2006Q2

REPORT INFORMATION
  Report Type: 
  Country: None (occurrence: None)
  Receive Date: 20060414
  Receipt Date: 20051229
  Transmission Date: 20061013
  Serious: No
  Sender: FDA-Public Use
  Company Number: 2005SP004555

PATIENT
  Age: 49 Year
  Sex: Female
  Weight: 63.5036 kg

DRUGS (5)
  1. LUNESTA [Suspect]
     Indication: BIPOLAR DISORDER
     Dosage: 3 MG;HS;ORAL
     Route: 048
     Dates: start: 20050101
  2. LUNESTA [Suspect]
     Indication: INSOMNIA
     Dosage: 3 MG;HS;ORAL
     Route: 048
     Dates: start: 20050101
  3. WELLBUTRIN [Concomitant]
  4. LAMOTRIGINE [Concomitant]
  5. VALTREX [Concomitant]

REACTIONS (5)
  - CHILLS [None]
  - DYSGEUSIA [None]
  - EAR DISCOMFORT [None]
  - HOT FLUSH [None]
  - NIGHT SWEATS [None]
